FAERS Safety Report 23937790 (Version 1)
Quarter: 2024Q2

REPORT INFORMATION
  Report Type: Spontaneous
  Country: US (occurrence: None)
  Receive Date: 20240604
  Receipt Date: 20240604
  Transmission Date: 20240716
  Serious: Yes (Hospitalization)
  Sender: FDA-Public Use
  Company Number: None

PATIENT
  Age: 42 Year
  Sex: Male

DRUGS (1)
  1. MAVYRET [Suspect]
     Active Substance: GLECAPREVIR\PIBRENTASVIR
     Indication: Hepatitis C
     Dosage: FREQUENCY : DAILY;?
     Route: 048
     Dates: start: 20240423

REACTIONS (7)
  - Weight decreased [None]
  - Diarrhoea [None]
  - Blood potassium decreased [None]
  - Blood calcium decreased [None]
  - Blood magnesium decreased [None]
  - Liver injury [None]
  - Therapy cessation [None]

NARRATIVE: CASE EVENT DATE: 20240520
